FAERS Safety Report 6787711 (Version 3)
Quarter: 2017Q2

REPORT INFORMATION
  Report Type: Spontaneous
  Country: US (occurrence: US)
  Receive Date: 20081015
  Receipt Date: 20170525
  Transmission Date: 20170830
  Serious: No
  Sender: FDA-Public Use
  Company Number: US-ASTRAZENECA-2008UW13129

PATIENT
  Age: 10821 Day
  Sex: Female
  Weight: 81.7 kg

DRUGS (12)
  1. ETODOLAC. [Concomitant]
     Active Substance: ETODOLAC
  2. VERAMEX [Concomitant]
  3. PROTONIX [Concomitant]
     Active Substance: PANTOPRAZOLE SODIUM
  4. MULTIVITAMINS [Concomitant]
     Active Substance: VITAMINS
  5. LEVOTHYROXINE. [Concomitant]
     Active Substance: LEVOTHYROXINE
  6. TOPAMAX [Concomitant]
     Active Substance: TOPIRAMATE
  7. ZOLMITRIPTAN. [Suspect]
     Active Substance: ZOLMITRIPTAN
     Indication: MIGRAINE
     Dosage: GENERIC 5 MG, UNKNOWN
     Route: 065
  8. ALBUTEROL INHALER [Concomitant]
     Active Substance: ALBUTEROL
  9. XYZAL [Concomitant]
     Active Substance: LEVOCETIRIZINE DIHYDROCHLORIDE
  10. SYMBICORT [Suspect]
     Active Substance: BUDESONIDE\FORMOTEROL FUMARATE DIHYDRATE
     Indication: ASTHMA
     Dosage: 2 PUFF TWO TIMES A DAY
     Route: 055
     Dates: start: 20080625, end: 20080627
  11. MINOCYCLINE [Concomitant]
     Active Substance: MINOCYCLINE\MINOCYCLINE HYDROCHLORIDE
  12. NORVASC [Concomitant]
     Active Substance: AMLODIPINE BESYLATE

REACTIONS (6)
  - Migraine [Unknown]
  - Hypoaesthesia [Unknown]
  - Throat tightness [Unknown]
  - Headache [Unknown]
  - Drug ineffective [Unknown]
  - Sensation of foreign body [Unknown]

NARRATIVE: CASE EVENT DATE: 20080625
